FAERS Safety Report 6794138-1 (Version None)
Quarter: 2010Q2

REPORT INFORMATION
  Report Type: 
  Country: None (occurrence: None)
  Receive Date: 20100624
  Receipt Date: 20090723
  Transmission Date: 20101027
  Serious: No
  Sender: FDA-Public Use
  Company Number: US-PFIZER INC-2009246030

PATIENT
  Sex: Female
  Weight: 57.152 kg

DRUGS (2)
  1. RELPAX [Suspect]
     Indication: MIGRAINE
     Dosage: 40 MG, UNK
     Dates: start: 20030101
  2. EXCEDRIN (MIGRAINE) [Concomitant]

REACTIONS (1)
  - MIGRAINE [None]
